FAERS Safety Report 9259607 (Version 3)
Quarter: 2014Q1

REPORT INFORMATION
  Report Type: Spontaneous
  Country: US (occurrence: US)
  Receive Date: 20130429
  Receipt Date: 20140311
  Transmission Date: 20141002
  Serious: Yes (Hospitalization, Disabling, Other)
  Sender: FDA-Public Use
  Company Number: US-ASTRAZENECA-2013SE27625

PATIENT
  Age: 55 Year
  Sex: Female
  Weight: 68 kg

DRUGS (21)
  1. NEXIUM [Suspect]
     Indication: GASTROOESOPHAGEAL REFLUX DISEASE
     Route: 048
  2. NEXIUM [Suspect]
     Indication: GASTROOESOPHAGEAL REFLUX DISEASE
     Route: 048
     Dates: start: 2002
  3. NEXIUM [Suspect]
     Indication: GASTROOESOPHAGEAL REFLUX DISEASE
     Route: 048
     Dates: start: 20090224
  4. NEXIUM [Suspect]
     Indication: GASTROOESOPHAGEAL REFLUX DISEASE
     Route: 048
     Dates: start: 20090709
  5. SULFAFALAZINE [Concomitant]
     Indication: RHEUMATOID ARTHRITIS
  6. PREDNISONE [Concomitant]
     Route: 048
     Dates: start: 20090716
  7. CYCLOBENZAPRINE [Concomitant]
     Route: 048
     Dates: start: 20101003
  8. LANSOPRAZOLE/ PREVACID [Concomitant]
     Dates: start: 2007, end: 2009
  9. LANSOPRAZOLE/ PREVACID [Concomitant]
     Route: 048
     Dates: start: 20090422
  10. SIMVASTATIN [Concomitant]
     Route: 048
     Dates: start: 20090422
  11. LISINOPRIL [Concomitant]
     Dosage: 1/2 TABLET BY MOUTH DAILY
     Dates: start: 20120209
  12. METOPROLOL [Concomitant]
     Dosage: 1 TABLET BY MOUTH DAILY
     Dates: start: 20120112
  13. ASPIRIN [Concomitant]
     Dates: start: 20120409
  14. TEMAZEPAM [Concomitant]
  15. ATORVASTATIN [Concomitant]
  16. PLAVIX [Concomitant]
  17. TOPROL XL [Concomitant]
  18. ONDANSETRON [Concomitant]
  19. XANAX [Concomitant]
  20. ZOLPIDEM [Concomitant]
  21. OMEPRAZOLE [Concomitant]
     Dates: start: 20090203

REACTIONS (17)
  - Back injury [Unknown]
  - Rheumatoid arthritis [Unknown]
  - Fall [Unknown]
  - Arterial disorder [Unknown]
  - Chest pain [Unknown]
  - Palpitations [Unknown]
  - Neoplasm malignant [Unknown]
  - Osteoporosis [Unknown]
  - Bone disorder [Unknown]
  - Multiple fractures [Unknown]
  - Foot fracture [Unknown]
  - Dyspnoea [Unknown]
  - Vitamin D deficiency [Unknown]
  - Hypersensitivity [Unknown]
  - Osteoarthritis [Unknown]
  - Spinal osteoarthritis [Unknown]
  - Osteopenia [Unknown]
